FAERS Safety Report 8616151-1 (Version None)
Quarter: 2012Q3

REPORT INFORMATION
  Report Type: 
  Country: None (occurrence: None)
  Receive Date: 20120823
  Receipt Date: 20120815
  Transmission Date: 20120928
  Serious: Yes (Other)
  Sender: FDA-Public Use
  Company Number: US-BAYER-2012-070872

PATIENT
  Age: 46 Year
  Sex: Female
  Weight: 130.16 kg

DRUGS (4)
  1. MIRENA [Suspect]
     Dosage: 20 ?G/D, CONT
     Route: 015
     Dates: start: 20120703
  2. MIRENA [Suspect]
     Indication: MENORRHAGIA
     Dosage: 20 MCG/24HR, CONT
     Route: 015
     Dates: start: 20120529, end: 20120703
  3. MIRENA [Suspect]
     Dosage: 20 ?G/D, CONT
     Route: 015
     Dates: start: 20070101, end: 20120101
  4. METFORMIN HCL [Concomitant]
     Dosage: 500 MG, BID

REACTIONS (2)
  - GENITAL HAEMORRHAGE [None]
  - DEVICE EXPULSION [None]
